FAERS Safety Report 6191550-9 (Version None)
Quarter: 2009Q2

REPORT INFORMATION
  Report Type: 
  Country: None (occurrence: None)
  Receive Date: 20090515
  Receipt Date: 20090508
  Transmission Date: 20091009
  Serious: Yes (Death, Hospitalization)
  Sender: FDA-Public Use
  Company Number: US-BAYER-200911425BCC

PATIENT
  Age: 88 Year
  Sex: Male
  Weight: 86 kg

DRUGS (1)
  1. ASPIRIN [Suspect]
     Indication: ANALGESIA

REACTIONS (4)
  - DYSPHAGIA [None]
  - HAEMORRHAGIC STROKE [None]
  - PNEUMONIA [None]
  - SPEECH DISORDER [None]
